FAERS Safety Report 13550384 (Version 1)
Quarter: 2017Q2

REPORT INFORMATION
  Report Type: Spontaneous
  Country: US (occurrence: US)
  Receive Date: 20170516
  Receipt Date: 20170516
  Transmission Date: 20170830
  Serious: Yes (Hospitalization)
  Sender: FDA-Public Use
  Company Number: None

PATIENT
  Age: 83 Year
  Sex: Female
  Weight: 82.2 kg

DRUGS (9)
  1. CLONAZEPAM. [Concomitant]
     Active Substance: CLONAZEPAM
  2. DURAGESIC [Concomitant]
     Active Substance: FENTANYL
  3. LOPRESSOR [Concomitant]
     Active Substance: METOPROLOL TARTRATE
  4. PROTONIX [Concomitant]
     Active Substance: PANTOPRAZOLE SODIUM
  5. MAG OX [Concomitant]
     Active Substance: MAGNESIUM OXIDE
  6. CA CARB [Concomitant]
  7. LASIX [Concomitant]
     Active Substance: FUROSEMIDE
  8. GLIPIZIDE. [Suspect]
     Active Substance: GLIPIZIDE
     Indication: DIABETES MELLITUS
     Route: 048
  9. ULORIC [Concomitant]
     Active Substance: FEBUXOSTAT

REACTIONS (3)
  - Dehydration [None]
  - Hypoglycaemia [None]
  - Gastritis viral [None]

NARRATIVE: CASE EVENT DATE: 20170405
